FAERS Safety Report 8534144-X (Version None)
Quarter: 2012Q3

REPORT INFORMATION
  Report Type: 
  Country: None (occurrence: None)
  Receive Date: 20120724
  Receipt Date: 20120625
  Transmission Date: 20120928
  Serious: No
  Sender: FDA-Public Use
  Company Number: US-ASTRAZENECA-2012SE42712

PATIENT
  Age: 63 Year
  Sex: Female
  Weight: 72.6 kg

DRUGS (6)
  1. CYMBALTA [Concomitant]
  2. TOPROL-XL [Suspect]
     Indication: HYPERTENSION
     Route: 048
     Dates: start: 20120201
  3. LIPITOR [Concomitant]
  4. FEMARA [Concomitant]
     Indication: NEOPLASM MALIGNANT
  5. LUNESTA [Concomitant]
  6. ULTRAM [Concomitant]

REACTIONS (1)
  - WEIGHT INCREASED [None]
